FAERS Safety Report 12684209 (Version 1)
Quarter: 2016Q3

REPORT INFORMATION
  Report Type: Spontaneous
  Country: GB (occurrence: GB)
  Receive Date: 20160825
  Receipt Date: 20160825
  Transmission Date: 20161109
  Serious: Yes (Other)
  Sender: FDA-Public Use
  Company Number: GB-PFIZER INC-2016397542

PATIENT
  Age: 48 Year
  Sex: Female
  Weight: 78.1 kg

DRUGS (1)
  1. CHAMPIX [Suspect]
     Active Substance: VARENICLINE TARTRATE
     Indication: SMOKING CESSATION THERAPY
     Dosage: 0.5 FOR ONE WEEK, 1MG FOR 3 DAYS TAKEN
     Route: 048
     Dates: start: 20160801, end: 20160810

REACTIONS (16)
  - Feeling abnormal [Unknown]
  - Malaise [Unknown]
  - Lethargy [Not Recovered/Not Resolved]
  - Mobility decreased [Unknown]
  - Mental impairment [Not Recovered/Not Resolved]
  - Migraine [Recovering/Resolving]
  - Dizziness [Not Recovered/Not Resolved]
  - Arthralgia [Not Recovered/Not Resolved]
  - Anxiety [Not Recovered/Not Resolved]
  - Anosmia [Unknown]
  - Fatigue [Unknown]
  - Ageusia [Unknown]
  - Panic attack [Recovering/Resolving]
  - Nausea [Not Recovered/Not Resolved]
  - Insomnia [Not Recovered/Not Resolved]
  - Dysgeusia [Not Recovered/Not Resolved]

NARRATIVE: CASE EVENT DATE: 20160802
